FAERS Safety Report 7008512-1 (Version None)
Quarter: 2010Q3

REPORT INFORMATION
  Report Type: 
  Country: None (occurrence: None)
  Receive Date: 20100922
  Receipt Date: 20100911
  Transmission Date: 20110219
  Serious: Yes (Other)
  Sender: FDA-Public Use
  Company Number: US-PFIZER INC-2010115608

PATIENT
  Sex: Male
  Weight: 99.773 kg

DRUGS (2)
  1. VIAGRA [Suspect]
     Dosage: 50 MG, AS NEEDED
     Route: 048
     Dates: start: 20100911
  2. LISDEXAMFETAMINE [Concomitant]
     Indication: ATTENTION DEFICIT/HYPERACTIVITY DISORDER
     Dosage: UNK

REACTIONS (1)
  - ERECTION INCREASED [None]
